FAERS Safety Report 5700523-9 (Version None)
Quarter: 2008Q2

REPORT INFORMATION
  Report Type: 
  Country: None (occurrence: None)
  Receive Date: 20080410
  Receipt Date: 20080402
  Transmission Date: 20081010
  Serious: Yes (Hospitalization)
  Sender: FDA-Public Use
  Company Number: GB-PFIZER INC-2008029677

PATIENT
  Age: 56 Year
  Sex: Female
  Weight: 99 kg

DRUGS (10)
  1. PREDNISOLONE [Suspect]
     Indication: ASTHMA
     Route: 048
  2. AMLODIPINE [Concomitant]
     Indication: HYPERTENSION
     Dosage: DAILY DOSE:10MG
     Route: 048
  3. CARBOCISTEINE [Concomitant]
     Indication: CHRONIC OBSTRUCTIVE PULMONARY DISEASE
     Route: 048
  4. COMBIVENT [Concomitant]
     Indication: CHRONIC OBSTRUCTIVE PULMONARY DISEASE
     Route: 055
  5. FUROSEMIDE [Concomitant]
     Indication: HYPERTENSION
     Dosage: DAILY DOSE:40MG
     Route: 048
  6. FUROSEMIDE [Concomitant]
     Indication: OEDEMA
  7. MONTELUKAST SODIUM [Concomitant]
     Indication: ASTHMA
     Dosage: DAILY DOSE:10MG
     Route: 048
  8. OXYGEN [Concomitant]
     Indication: CHRONIC OBSTRUCTIVE PULMONARY DISEASE
  9. RISEDRONATE SODIUM [Concomitant]
     Indication: OSTEOPOROSIS
     Dosage: DAILY DOSE:5MG
     Route: 048
  10. THEOPHYLLINE [Concomitant]
     Indication: ASTHMA
     Route: 048

REACTIONS (1)
  - HYPOGLYCAEMIA [None]
